FAERS Safety Report 4999270-0 (Version None)
Quarter: 2006Q2

REPORT INFORMATION
  Report Type: 
  Country: None (occurrence: None)
  Receive Date: 20060509
  Receipt Date: 20060421
  Transmission Date: 20061013
  Serious: Yes (Hospitalization)
  Sender: FDA-Public Use
  Company Number: US200604003662

PATIENT
  Sex: Male

DRUGS (2)
  1. HUMALO 25% LISPRO, 75% NPL (LISPRO 25% LISPRO, 75% NPL) PEN, DISPOSABL [Suspect]
     Indication: DIABETES MELLITUS
     Dosage: 100 U, DAILY (1/D)
  2. HUMALOG MIX 25L/75NPL PEN [Concomitant]

REACTIONS (1)
  - CEREBROVASCULAR ACCIDENT [None]
